FAERS Safety Report 8250585-2 (Version None)
Quarter: 2012Q2

REPORT INFORMATION
  Report Type: 
  Country: None (occurrence: None)
  Receive Date: 20120402
  Receipt Date: 20120402
  Transmission Date: 20120825
  Serious: Yes (Other)
  Sender: FDA-Public Use
  Company Number: None

PATIENT
  Sex: Female
  Weight: 61.234 kg

DRUGS (1)
  1. ACCUTANE [Suspect]
     Dates: start: 20050410, end: 20050910

REACTIONS (8)
  - DEPRESSION [None]
  - HYPERSENSITIVITY [None]
  - BLINDNESS [None]
  - ANXIETY DISORDER [None]
  - IRRITABLE BOWEL SYNDROME [None]
  - INFLAMMATORY BOWEL DISEASE [None]
  - GASTROOESOPHAGEAL REFLUX DISEASE [None]
  - HYPOTHYROIDISM [None]
